FAERS Safety Report 9109536 (Version 2)
Quarter: 2013Q1

REPORT INFORMATION
  Report Type: Spontaneous
  Country: US (occurrence: US)
  Receive Date: 20130222
  Receipt Date: 20130328
  Transmission Date: 20140127
  Serious: Yes (Disabling)
  Sender: FDA-Public Use
  Company Number: US-PFIZER INC-2013063789

PATIENT
  Age: 52 Year
  Sex: Female

DRUGS (11)
  1. LYRICA [Suspect]
     Dosage: 100 MG, 3X/DAY
  2. ZOLOFT [Suspect]
     Dosage: 50 MG, 1X/DAY
  3. NEURONTIN [Suspect]
     Dosage: UNK
  4. AVAPRO [Concomitant]
     Dosage: UNK
  5. HYDROCODONE [Concomitant]
     Dosage: UNK
  6. LANTUS [Concomitant]
     Dosage: UNK
  7. FLEXERIL [Concomitant]
     Dosage: UNK
  8. HUMALOG [Concomitant]
     Dosage: UNK
  9. HYDROCHLOROTHIAZIDE [Concomitant]
     Dosage: UNK
  10. PLAVIX [Concomitant]
     Dosage: UNK
  11. TOPAMAX [Concomitant]
     Dosage: UNK

REACTIONS (3)
  - Blindness [Unknown]
  - Impaired work ability [Unknown]
  - Impaired driving ability [Unknown]
